FAERS Safety Report 19375033 (Version 2)
Quarter: 2021Q2

REPORT INFORMATION
  Report Type: Report from Study
  Country: US (occurrence: US)
  Receive Date: 20210604
  Receipt Date: 20210625
  Transmission Date: 20210717
  Serious: Yes (Hospitalization, Other)
  Sender: FDA-Public Use
  Company Number: US-BAYER-2021-148531

PATIENT
  Age: 52 Year
  Sex: Male

DRUGS (1)
  1. STIVARGA [Suspect]
     Active Substance: REGORAFENIB
     Indication: COLORECTAL CANCER
     Dosage: 160 MG DAILY AFTER A LOW FAT MEAL FOR 21 DAYS ON AND 7 DAYS OFF
     Route: 048
     Dates: start: 20210519, end: 20210527

REACTIONS (17)
  - Headache [Recovered/Resolved]
  - Asthenia [Recovered/Resolved]
  - Dysphonia [Not Recovered/Not Resolved]
  - Decreased activity [Not Recovered/Not Resolved]
  - Chills [Recovered/Resolved]
  - Dehydration [Recovered/Resolved]
  - Hyperhidrosis [Recovered/Resolved]
  - Pain in extremity [Not Recovered/Not Resolved]
  - Dyspnoea [Recovered/Resolved]
  - Constipation [Not Recovered/Not Resolved]
  - Hypersomnia [Recovered/Resolved]
  - Hypertension [Recovered/Resolved]
  - Palmar-plantar erythrodysaesthesia syndrome [Recovered/Resolved]
  - Gait inability [Recovered/Resolved]
  - Neuropathy peripheral [Not Recovered/Not Resolved]
  - Fatigue [Not Recovered/Not Resolved]
  - Pain in extremity [Recovered/Resolved]
